FAERS Safety Report 8010875-5 (Version None)
Quarter: 2011Q4

REPORT INFORMATION
  Report Type: 
  Country: None (occurrence: None)
  Receive Date: 20111228
  Receipt Date: 20111215
  Transmission Date: 20120403
  Serious: Yes (Other)
  Sender: FDA-Public Use
  Company Number: US-ELI_LILLY_AND_COMPANY-US201104001809

PATIENT
  Sex: Female

DRUGS (11)
  1. FORTEO [Suspect]
     Dosage: 20 UG, QD
     Route: 065
  2. FORTEO [Suspect]
     Dosage: 20 UG, QD
     Route: 065
  3. FORTEO [Suspect]
     Dosage: 20 UG, QD
     Route: 065
  4. FORTEO [Suspect]
     Dosage: 20 UG, QD
     Route: 065
  5. FORTEO [Suspect]
     Indication: OSTEOPOROSIS
     Dosage: 20 UG, QD
     Route: 065
  6. FORTEO [Suspect]
     Dosage: 20 UG, QD
     Route: 065
  7. LACTULOSE [Concomitant]
     Indication: CONSTIPATION
  8. FORTEO [Suspect]
     Dosage: 20 UG, QD
  9. METAMUCIL-2 [Concomitant]
     Indication: CONSTIPATION
  10. ADVIL LIQUI-GELS [Concomitant]
     Indication: PAIN
  11. FORTEO [Suspect]
     Dosage: 20 UG, QD
     Route: 065

REACTIONS (27)
  - PRESYNCOPE [None]
  - JOINT STIFFNESS [None]
  - HYPOACUSIS [None]
  - OEDEMA PERIPHERAL [None]
  - ARTHRALGIA [None]
  - CONDITION AGGRAVATED [None]
  - INCORRECT STORAGE OF DRUG [None]
  - GASTRIC DISORDER [None]
  - ASTHENIA [None]
  - RASH PRURITIC [None]
  - UNDERWEIGHT [None]
  - WEIGHT DECREASED [None]
  - URETHRAL CARBUNCLE [None]
  - ABDOMINAL PAIN [None]
  - ABDOMINAL DISTENSION [None]
  - FATIGUE [None]
  - FALL [None]
  - PAIN IN EXTREMITY [None]
  - MUSCULAR WEAKNESS [None]
  - FLATULENCE [None]
  - BALANCE DISORDER [None]
  - CONFUSIONAL STATE [None]
  - VAGINAL HAEMORRHAGE [None]
  - THROMBOSIS [None]
  - SPEECH DISORDER [None]
  - MOVEMENT DISORDER [None]
  - RASH ERYTHEMATOUS [None]
